FAERS Safety Report 8121772-9 (Version None)
Quarter: 2012Q1

REPORT INFORMATION
  Report Type: 
  Country: None (occurrence: None)
  Receive Date: 20120207
  Receipt Date: 20120207
  Transmission Date: 20120608
  Serious: No
  Sender: FDA-Public Use
  Company Number: None

PATIENT
  Age: 57 Year
  Sex: Female
  Weight: 56.6996 kg

DRUGS (3)
  1. SYNTHROID [Concomitant]
  2. LEXAPRO [Concomitant]
  3. PRADAXA [Suspect]
     Indication: ATRIAL FIBRILLATION
     Dosage: 150 MG TWICE A DAY MOUTH
     Route: 048
     Dates: start: 20100601, end: 20120101

REACTIONS (1)
  - VAGINAL HAEMORRHAGE [None]
